FAERS Safety Report 19244931 (Version 1)
Quarter: 2021Q2

REPORT INFORMATION
  Report Type: Spontaneous
  Country: IN (occurrence: KR)
  Receive Date: 20210511
  Receipt Date: 20210511
  Transmission Date: 20210717
  Serious: Yes (Other)
  Sender: FDA-Public Use
  Company Number: KR-BAXTER HEALTHCARE-2110445

PATIENT
  Age: 34 Year
  Sex: Female

DRUGS (2)
  1. TISSEEL FIBRIN SEALANT [Suspect]
     Active Substance: FIBRINOGEN HUMAN\THROMBIN HUMAN
     Indication: VAGINAL HAEMORRHAGE
  2. TISSEEL [Suspect]
     Active Substance: FIBRINOGEN HUMAN\THROMBIN HUMAN

REACTIONS (1)
  - Post procedural haemorrhage [Recovered/Resolved]
